FAERS Safety Report 9903768 (Version 5)
Quarter: 2014Q2

REPORT INFORMATION
  Report Type: Spontaneous
  Country: IT (occurrence: IT)
  Receive Date: 20140218
  Receipt Date: 20140423
  Transmission Date: 20141212
  Serious: Yes (Other)
  Sender: FDA-Public Use
  Company Number: IT-RANBAXY-2013RR-75219

PATIENT
  Sex: 0

DRUGS (4)
  1. CIPRALEX [Suspect]
     Indication: MAJOR DEPRESSION
     Dosage: 10 MG/DAY, DURING 0-16 GESTATIONAL WEEKS
     Route: 064
  2. SEREUPIN [Suspect]
     Indication: MAJOR DEPRESSION
     Dosage: 20-40 MG/DAY, DURING 16-38 GESTATIONAL WEEKS
     Route: 064
  3. RIVOTRIL [Suspect]
     Indication: MAJOR DEPRESSION
     Dosage: 0.5 MG/DAY, DURING 0-11 GESTATIONAL WEEKS
     Route: 064
  4. LORAZEPAM [Suspect]
     Indication: MAJOR DEPRESSION
     Dosage: 1 MG/DAY, DURING 12-38 GESTATIONAL WEEKS
     Route: 064

REACTIONS (7)
  - Drug withdrawal syndrome neonatal [Recovered/Resolved]
  - Hypoglycaemia [Recovered/Resolved]
  - Lethargy [Recovering/Resolving]
  - Hypotonia [Recovered/Resolved]
  - Hyporeflexia [Recovered/Resolved]
  - Hyporesponsive to stimuli [Recovering/Resolving]
  - Foetal exposure during pregnancy [Recovering/Resolving]
